FAERS Safety Report 15538179 (Version 2)
Quarter: 2021Q3

REPORT INFORMATION
  Report Type: Spontaneous
  Country: US (occurrence: US)
  Receive Date: 20181022
  Receipt Date: 20210719
  Transmission Date: 20211014
  Serious: Yes (Hospitalization)
  Sender: FDA-Public Use
  Company Number: US-PFIZER INC-2018424212

PATIENT
  Age: 90 Year
  Sex: Female

DRUGS (1)
  1. IBRANCE [Suspect]
     Active Substance: PALBOCICLIB
     Dosage: 75 MG, CYCLIC (ONCE DAILY TAKEN WITH OR WITHOUT FOOD FOR 21 DAYS FOLLOWED BY 14 DAYS OFF TREATMENT)
     Route: 048

REACTIONS (4)
  - Anger [Unknown]
  - Fear [Unknown]
  - Hepatic enzyme abnormal [Unknown]
  - Hypoacusis [Unknown]
